FAERS Safety Report 9151420 (Version 1)
Quarter: 2013Q1

REPORT INFORMATION
  Report Type: Spontaneous
  Country: US (occurrence: US)
  Receive Date: 20130308
  Receipt Date: 20130308
  Transmission Date: 20140127
  Serious: No
  Sender: FDA-Public Use
  Company Number: US-GLAXOSMITHKLINE-A0981501A

PATIENT
  Age: 48 Year
  Sex: Male

DRUGS (3)
  1. NICORETTE [Suspect]
     Indication: TOBACCO ABUSE
  2. NICORETTE [Suspect]
     Indication: TOBACCO ABUSE
  3. NICODERM CQ [Suspect]
     Indication: TOBACCO ABUSE

REACTIONS (1)
  - Drug ineffective [Unknown]
